FAERS Safety Report 13238742 (Version 1)
Quarter: 2017Q1

REPORT INFORMATION
  Report Type: Spontaneous
  Country: US (occurrence: US)
  Receive Date: 20170216
  Receipt Date: 20170216
  Transmission Date: 20170428
  Serious: Yes (Other)
  Sender: FDA-Public Use
  Company Number: US-CLINIGEN GROUP PLC/ CLINIGEN HEALTHCARE LTD-E2B_00001546

PATIENT
  Age: 46 Year
  Sex: Female
  Weight: 57 kg

DRUGS (61)
  1. ETHYOL [Suspect]
     Active Substance: AMIFOSTINE
     Dosage: 200 MG/M2* 4 MONTH(S)
     Route: 042
     Dates: start: 19961218, end: 199705
  2. ETHYOL [Suspect]
     Active Substance: AMIFOSTINE
     Dosage: 200 MG/M2 1 CYCLE(S)
     Route: 042
     Dates: start: 19970101, end: 19970103
  3. ETHYOL [Suspect]
     Active Substance: AMIFOSTINE
     Dosage: 200 MG/M2 1 CYCLE(S)
     Route: 042
     Dates: start: 19970101, end: 19970103
  4. ETHYOL [Suspect]
     Active Substance: AMIFOSTINE
     Dosage: 200 MG/M2 1 CYCLE(S)
     Route: 042
     Dates: start: 19970108, end: 19970110
  5. ETHYOL [Suspect]
     Active Substance: AMIFOSTINE
     Dosage: 200 MG/M2 1 CYCLE(S)
     Route: 042
     Dates: start: 19970108, end: 19970110
  6. HEXADROL [Concomitant]
     Active Substance: DEXAMETHASONE
     Dosage: 20 MG 1 DAY(S)
     Route: 065
     Dates: start: 199704, end: 199704
  7. ETHYOL [Suspect]
     Active Substance: AMIFOSTINE
     Dosage: 200 MG/M2* 4 MONTH(S)
     Route: 042
     Dates: start: 19961218, end: 199705
  8. ETHYOL [Suspect]
     Active Substance: AMIFOSTINE
     Dosage: 200 MG/M2 1 CYCLE(S)
     Route: 042
     Dates: start: 19961218, end: 19961220
  9. ETHYOL [Suspect]
     Active Substance: AMIFOSTINE
     Dosage: 200 MG/M2 1 CYCLE(S)
     Route: 042
     Dates: start: 19961218, end: 19961220
  10. ETHYOL [Suspect]
     Active Substance: AMIFOSTINE
     Dosage: 200 MG/M2 1 CYCLE(S)
     Route: 042
     Dates: start: 19961218, end: 19961220
  11. ETHYOL [Suspect]
     Active Substance: AMIFOSTINE
     Dosage: 200 MG/M2 1 CYCLE(S)
     Route: 042
     Dates: start: 19970101, end: 19970103
  12. ETHYOL [Suspect]
     Active Substance: AMIFOSTINE
     Dosage: 200 MG/M2 1 CYCLE(S)
     Route: 042
     Dates: start: 19970127, end: 19970129
  13. ETHYOL [Suspect]
     Active Substance: AMIFOSTINE
     Dosage: 200 MG/M2 1 CYCLE(S)
     Route: 042
     Dates: start: 19970127, end: 19970129
  14. ETHYOL [Suspect]
     Active Substance: AMIFOSTINE
     Dosage: 200 MG/M2 1 CYCLE(S)
     Route: 042
     Dates: start: 19970127, end: 19970129
  15. ETHYOL [Suspect]
     Active Substance: AMIFOSTINE
     Dosage: UNKNOWN 1 DAY(S)
     Route: 042
     Dates: start: 199704, end: 199704
  16. ETHYOL [Suspect]
     Active Substance: AMIFOSTINE
     Dosage: UNKNOWN 1 DAY(S)
     Route: 042
     Dates: start: 199704, end: 199704
  17. ETHYOL [Suspect]
     Active Substance: AMIFOSTINE
     Dosage: UNKNOWN 1 DAY(S)
     Route: 042
     Dates: start: 199705, end: 199705
  18. ETHYOL [Suspect]
     Active Substance: AMIFOSTINE
     Dosage: UNKNOWN 1 DAY(S)
     Route: 042
     Dates: start: 199705, end: 199705
  19. HEXADROL [Concomitant]
     Active Substance: DEXAMETHASONE
     Dosage: 20 MG 3 DAY(S)
     Route: 065
     Dates: start: 19970127, end: 19970129
  20. ETHYOL [Suspect]
     Active Substance: AMIFOSTINE
     Dosage: 200 MG/M2 1 CYCLE(S)
     Route: 042
     Dates: start: 19961218, end: 19961220
  21. ETHYOL [Suspect]
     Active Substance: AMIFOSTINE
     Dosage: 200 MG/M2 1 CYCLE(S)
     Route: 042
     Dates: start: 19970101, end: 19970103
  22. ETHYOL [Suspect]
     Active Substance: AMIFOSTINE
     Dosage: 200 MG/M2 1 CYCLE(S)
     Route: 042
     Dates: start: 19970127, end: 19970129
  23. ZOFRAN (ONDANSETRON) [Concomitant]
     Dosage: 32 MG 1 DAY(S)
     Route: 065
     Dates: start: 199705, end: 199705
  24. ETHYOL [Suspect]
     Active Substance: AMIFOSTINE
     Dosage: 200 MG/M2* 4 MONTH(S)
     Route: 042
     Dates: start: 19961218, end: 199705
  25. ETHYOL [Suspect]
     Active Substance: AMIFOSTINE
     Dosage: 200 MG/M2 1 CYCLE(S)
     Route: 042
     Dates: start: 19970101, end: 19970103
  26. ETHYOL [Suspect]
     Active Substance: AMIFOSTINE
     Dosage: 200 MG/M2 1 CYCLE(S)
     Route: 042
     Dates: start: 19970108, end: 19970110
  27. ETHYOL [Suspect]
     Active Substance: AMIFOSTINE
     Dosage: 200 MG/M2 1 CYCLE(S)
     Route: 042
     Dates: start: 19970108, end: 19970110
  28. ETHYOL [Suspect]
     Active Substance: AMIFOSTINE
     Dosage: 200 MG/M2 1 CYCLE(S)
     Route: 042
     Dates: start: 19970108, end: 19970110
  29. ETHYOL [Suspect]
     Active Substance: AMIFOSTINE
     Dosage: 200 MG/M2 1 CYCLE(S)
     Route: 042
     Dates: start: 19970127, end: 19970129
  30. ETHYOL [Suspect]
     Active Substance: AMIFOSTINE
     Dosage: UNKNOWN 1 DAY(S)
     Route: 042
     Dates: start: 199705, end: 199705
  31. ZOFRAN (ONDANSETRON) [Concomitant]
     Dosage: 32 MG 3 DAY(S)
     Route: 065
     Dates: start: 19970101, end: 19970103
  32. ZOFRAN (ONDANSETRON) [Concomitant]
     Dosage: 32 MG 3 DAY(S)
     Route: 065
     Dates: start: 19970127, end: 19970129
  33. HEXADROL [Concomitant]
     Active Substance: DEXAMETHASONE
     Dosage: 20 MG 3 DAY(S)
     Route: 065
     Dates: start: 19970108, end: 19970110
  34. ETHYOL [Suspect]
     Active Substance: AMIFOSTINE
     Dosage: 200 MG/M2 1 CYCLE(S)
     Route: 042
     Dates: start: 19961218, end: 19961220
  35. ETHYOL [Suspect]
     Active Substance: AMIFOSTINE
     Dosage: 200 MG/M2 1 CYCLE(S)
     Route: 042
     Dates: start: 19970101, end: 19970103
  36. ETHYOL [Suspect]
     Active Substance: AMIFOSTINE
     Dosage: 200 MG/M2 1 CYCLE(S)
     Route: 042
     Dates: start: 19970108, end: 19970110
  37. ETHYOL [Suspect]
     Active Substance: AMIFOSTINE
     Dosage: UNKNOWN 1 DAY(S)
     Route: 042
     Dates: start: 199704, end: 199704
  38. ETHYOL [Suspect]
     Active Substance: AMIFOSTINE
     Dosage: UNKNOWN 1 DAY(S)
     Route: 042
     Dates: start: 199704, end: 199704
  39. ETHYOL [Suspect]
     Active Substance: AMIFOSTINE
     Dosage: UNKNOWN 1 DAY(S)
     Route: 042
     Dates: start: 199704, end: 199704
  40. ETHYOL [Suspect]
     Active Substance: AMIFOSTINE
     Dosage: UNKNOWN 1 DAY(S)
     Route: 042
     Dates: start: 199704, end: 199704
  41. ETHYOL [Suspect]
     Active Substance: AMIFOSTINE
     Dosage: UNKNOWN 1 DAY(S)
     Route: 042
     Dates: start: 199705, end: 199705
  42. ETHYOL [Suspect]
     Active Substance: AMIFOSTINE
     Dosage: 200 MG/M2* 4 MONTH(S)
     Route: 042
     Dates: start: 19961218, end: 199705
  43. ETHYOL [Suspect]
     Active Substance: AMIFOSTINE
     Dosage: 200 MG/M2* 4 MONTH(S)
     Route: 042
     Dates: start: 19961218, end: 199705
  44. ETHYOL [Suspect]
     Active Substance: AMIFOSTINE
     Dosage: 200 MG/M2 1 CYCLE(S)
     Route: 042
     Dates: start: 19970108, end: 19970110
  45. ETHYOL [Suspect]
     Active Substance: AMIFOSTINE
     Dosage: 200 MG/M2 1 CYCLE(S)
     Route: 042
     Dates: start: 19970127, end: 19970129
  46. ETHYOL [Suspect]
     Active Substance: AMIFOSTINE
     Dosage: UNKNOWN 1 DAY(S)
     Route: 042
     Dates: start: 199704, end: 199704
  47. ETHYOL [Suspect]
     Active Substance: AMIFOSTINE
     Dosage: UNKNOWN 1 DAY(S)
     Route: 042
     Dates: start: 199705, end: 199705
  48. ZOFRAN (ONDANSETRON) [Concomitant]
     Dosage: 32 MG 1 DAY(S)
     Route: 065
     Dates: start: 199704, end: 199704
  49. ETHYOL [Suspect]
     Active Substance: AMIFOSTINE
     Indication: ADVERSE DRUG REACTION
     Dosage: 200 MG/M2* 4 MONTH(S)
     Route: 042
     Dates: start: 19961218, end: 199705
  50. ETHYOL [Suspect]
     Active Substance: AMIFOSTINE
     Dosage: 200 MG/M2 1 CYCLE(S)
     Route: 042
     Dates: start: 19961218, end: 19961220
  51. ETHYOL [Suspect]
     Active Substance: AMIFOSTINE
     Dosage: 200 MG/M2 1 CYCLE(S)
     Route: 042
     Dates: start: 19970127, end: 19970129
  52. ETHYOL [Suspect]
     Active Substance: AMIFOSTINE
     Dosage: UNKNOWN 1 DAY(S)
     Route: 042
     Dates: start: 199705, end: 199705
  53. ZOFRAN (ONDANSETRON) [Concomitant]
     Dosage: 32 MG 3 DAY(S)
     Route: 065
     Dates: start: 19961218, end: 19961220
  54. ZOFRAN (ONDANSETRON) [Concomitant]
     Dosage: 32 MG 3 DAY(S)
     Route: 065
     Dates: start: 19970108, end: 19970110
  55. HEXADROL [Concomitant]
     Active Substance: DEXAMETHASONE
     Dosage: 20 MG 3 DAY(S)
     Route: 065
     Dates: start: 19961218, end: 19961220
  56. HEXADROL [Concomitant]
     Active Substance: DEXAMETHASONE
     Dosage: 20 MG 1 DAY(S)
     Route: 065
     Dates: start: 199705, end: 199705
  57. ETHYOL [Suspect]
     Active Substance: AMIFOSTINE
     Dosage: 200 MG/M2 1 CYCLE(S)
     Route: 042
     Dates: start: 19961218, end: 19961220
  58. ETHYOL [Suspect]
     Active Substance: AMIFOSTINE
     Dosage: 200 MG/M2 1 CYCLE(S)
     Route: 042
     Dates: start: 19970101, end: 19970103
  59. ETHYOL [Suspect]
     Active Substance: AMIFOSTINE
     Dosage: UNKNOWN 1 DAY(S)
     Route: 042
     Dates: start: 199705, end: 199705
  60. HEXADROL [Concomitant]
     Active Substance: DEXAMETHASONE
     Dosage: 20 MG 3 DAY(S)
     Route: 065
     Dates: start: 19970101, end: 19970103
  61. ETHYOL [Suspect]
     Active Substance: AMIFOSTINE
     Dosage: 200 MG/M2* 4 MONTH(S)
     Route: 042
     Dates: start: 19961218, end: 199705

REACTIONS (1)
  - Arrhythmia [Recovered/Resolved]

NARRATIVE: CASE EVENT DATE: 199612
